FAERS Safety Report 6305816-2 (Version None)
Quarter: 2009Q3

REPORT INFORMATION
  Report Type: 
  Country: None (occurrence: None)
  Receive Date: 20090810
  Receipt Date: 20090422
  Transmission Date: 20100115
  Serious: Yes (Other)
  Sender: FDA-Public Use
  Company Number: US-JNJFOC-20090405748

PATIENT
  Age: 4 Year
  Sex: Female
  Weight: 13.1543 kg

DRUGS (2)
  1. CHILDREN'S MOTRIN [Suspect]
     Indication: PAIN
     Dosage: 100 MG, 1 IN 1 DAY, ORAL
     Route: 048
     Dates: start: 20090418, end: 20090419
  2. CHILDREN'S MOTRIN [Suspect]
     Indication: PYREXIA
     Dosage: 100 MG, 1 IN 1 DAY, ORAL
     Route: 048
     Dates: start: 20090418, end: 20090419

REACTIONS (3)
  - ABDOMINAL DISCOMFORT [None]
  - DIARRHOEA [None]
  - HAEMATOCHEZIA [None]
